FAERS Safety Report 21660510 (Version 1)
Quarter: 2022Q4

REPORT INFORMATION
  Report Type: Spontaneous
  Country: FR (occurrence: FR)
  Receive Date: 20221130
  Receipt Date: 20221130
  Transmission Date: 20230112
  Serious: Yes (Other)
  Sender: FDA-Public Use
  Company Number: FR-SUN PHARMACEUTICAL INDUSTRIES LTD-2022RR-366274

PATIENT
  Age: 26 Year
  Sex: Female

DRUGS (5)
  1. GEMCITABINE [Suspect]
     Active Substance: GEMCITABINE
     Indication: EGFR gene mutation
     Dosage: UNK
     Route: 065
     Dates: start: 202009, end: 202107
  2. PEMETREXED [Suspect]
     Active Substance: PEMETREXED
     Indication: EGFR gene mutation
     Dosage: UNK
     Route: 065
     Dates: start: 202009, end: 202107
  3. CARBOPLATIN [Suspect]
     Active Substance: CARBOPLATIN
     Indication: EGFR gene mutation
     Dosage: UNK
     Route: 065
     Dates: start: 202009, end: 202107
  4. BEVACIZUMAB [Suspect]
     Active Substance: BEVACIZUMAB
     Indication: EGFR gene mutation
     Dosage: UNK
     Route: 065
     Dates: start: 202009, end: 202107
  5. ATEZOLIZUMAB [Suspect]
     Active Substance: ATEZOLIZUMAB
     Indication: EGFR gene mutation
     Dosage: UNK
     Route: 065
     Dates: start: 202009, end: 202107

REACTIONS (3)
  - Therapeutic product effect incomplete [Unknown]
  - Diarrhoea [Unknown]
  - Disease progression [Unknown]
